FAERS Safety Report 5096006-2 (Version None)
Quarter: 2006Q3

REPORT INFORMATION
  Report Type: 
  Country: None (occurrence: None)
  Receive Date: 20060905
  Receipt Date: 20060828
  Transmission Date: 20061208
  Serious: Yes (Hospitalization)
  Sender: FDA-Public Use
  Company Number: FR-GLAXOSMITHKLINE-B0435852A

PATIENT
  Age: 79 Year
  Sex: Female

DRUGS (6)
  1. ZELITREX [Suspect]
     Indication: HERPES ZOSTER
     Dosage: 2TAB THREE TIMES PER DAY
     Route: 048
     Dates: start: 20060505, end: 20060506
  2. RIVOTRIL [Suspect]
     Dosage: 2DROP AT NIGHT
     Route: 048
     Dates: start: 20060505, end: 20060506
  3. DEROXAT [Concomitant]
     Route: 048
  4. COLTRAMYL [Concomitant]
  5. ASPIRIN [Concomitant]
  6. DITROPAN [Concomitant]

REACTIONS (3)
  - DIZZINESS [None]
  - FALL [None]
  - MOBILITY DECREASED [None]
